FAERS Safety Report 11552123 (Version 1)
Quarter: 2015Q3

REPORT INFORMATION
  Report Type: Spontaneous
  Country: US (occurrence: US)
  Receive Date: 20150903
  Receipt Date: 20150903
  Transmission Date: 20151125
  Serious: No
  Sender: FDA-Public Use
  Company Number: US-ELI_LILLY_AND_COMPANY-US201006005612

PATIENT
  Age: 72 Year
  Sex: Male

DRUGS (1)
  1. HUMALOG MIX75/25 [Suspect]
     Active Substance: INSULIN LISPRO
     Indication: DIABETES MELLITUS
     Dosage: 60 U, 2/D

REACTIONS (4)
  - Injection site haemorrhage [Unknown]
  - Injection site inflammation [Unknown]
  - Tremor [Unknown]
  - Visual acuity reduced [Not Recovered/Not Resolved]
